FAERS Safety Report 9818280 (Version 3)
Quarter: 2016Q3

REPORT INFORMATION
  Report Type: Report from Study
  Country: US (occurrence: US)
  Receive Date: 20140115
  Receipt Date: 20160908
  Transmission Date: 20161109
  Serious: Yes (Other)
  Sender: FDA-Public Use
  Company Number: US-PFIZER INC-2010170303

PATIENT
  Sex: Female

DRUGS (3)
  1. CELEBREX [Suspect]
     Active Substance: CELECOXIB
     Dosage: UNK
  2. PRISTIQ EXTENDED-RELEASE [Suspect]
     Active Substance: DESVENLAFAXINE SUCCINATE
     Dosage: UNK
  3. PRISTIQ EXTENDED-RELEASE [Suspect]
     Active Substance: DESVENLAFAXINE SUCCINATE
     Dosage: 40 MG, UNK

REACTIONS (8)
  - Psychomotor hyperactivity [Unknown]
  - Drug intolerance [Unknown]
  - Dizziness [Unknown]
  - Emotional disorder [Unknown]
  - Kidney infection [Unknown]
  - Back pain [Unknown]
  - Crying [Unknown]
  - Drug withdrawal syndrome [Unknown]
